FAERS Safety Report 6585099-9 (Version None)
Quarter: 2010Q1

REPORT INFORMATION
  Report Type: 
  Country: None (occurrence: None)
  Receive Date: 20100217
  Receipt Date: 20100208
  Transmission Date: 20100710
  Serious: Yes (Life-Threatening, Hospitalization)
  Sender: FDA-Public Use
  Company Number: FR-PFIZER INC-2010016026

PATIENT
  Age: 87 Year
  Sex: Male
  Weight: 64 kg

DRUGS (8)
  1. TAHOR [Suspect]
     Dosage: 10 MG, 1X/DAY
     Route: 048
  2. ACTILYSE ^BOEHRINGER INGELHEIM^ [Suspect]
     Dosage: 55 MG, SINGLE
     Dates: start: 20091210
  3. COVERSYL [Suspect]
     Dosage: 1 DF, 1X/DAY
  4. CARDENSIEL [Suspect]
     Dosage: 2.5 MG, 1X/DAY
     Route: 048
  5. KARDEGIC [Suspect]
     Dosage: 75 MG, 1X/DAY
     Route: 048
  6. LEVOTHYROXINE SODIUM [Suspect]
     Dosage: 25 UG, 1X/DAY
     Route: 048
  7. OMEPRAZOLE [Suspect]
     Dosage: 1 DF, 1X/DAY
  8. BETASERC [Suspect]
     Dosage: 2 DF, 1X/DAY
     Route: 048

REACTIONS (1)
  - CEREBRAL HAEMORRHAGE [None]
